FAERS Safety Report 23128241 (Version 1)
Quarter: 2023Q4

REPORT INFORMATION
  Report Type: Report from Study
  Country: AU (occurrence: AU)
  Receive Date: 20231031
  Receipt Date: 20231031
  Transmission Date: 20240110
  Serious: Yes (Other)
  Sender: FDA-Public Use
  Company Number: AU-BEIGENE-BGN-2023-012432

PATIENT

DRUGS (2)
  1. TISLELIZUMAB [Suspect]
     Active Substance: TISLELIZUMAB
     Indication: Richter^s syndrome
     Dosage: 200 MILLIGRAM, Q3WK
     Route: 041
  2. BRUKINSA [Suspect]
     Active Substance: ZANUBRUTINIB
     Indication: Richter^s syndrome
     Dosage: 160 MILLIGRAM, BID
     Route: 048

REACTIONS (1)
  - Hypersensitivity [Recovered/Resolved]
